FAERS Safety Report 8158714-6 (Version None)
Quarter: 2012Q1

REPORT INFORMATION
  Report Type: 
  Country: None (occurrence: None)
  Receive Date: 20120223
  Receipt Date: 20120216
  Transmission Date: 20120608
  Serious: Yes (Hospitalization, Other)
  Sender: FDA-Public Use
  Company Number: US-SHIRE-ALL1-2012-00958

PATIENT
  Age: 80 Year
  Sex: Male
  Weight: 67.574 kg

DRUGS (3)
  1. UNSPECIFIED DIABETES MEDICATION [Concomitant]
     Indication: DIABETES MELLITUS
     Dosage: UNK, UNKNOWN
     Route: 065
  2. PENTASA [Suspect]
     Indication: CROHN'S DISEASE
     Dosage: 1000 MG (TWO 500 MG CAPSULES), OTHER WITH MEALS AND HOUR OF SLEEP)
     Route: 048
     Dates: start: 20040101, end: 20120213
  3. UNSPECIFIED HIGH BLOOD PRESSURE MEDICATION [Concomitant]
     Indication: BLOOD PRESSURE INCREASED
     Dosage: UNK, UNKNOWN
     Route: 048

REACTIONS (9)
  - TACHYARRHYTHMIA [None]
  - ABDOMINAL PAIN [None]
  - OFF LABEL USE [None]
  - CORONARY ARTERY OCCLUSION [None]
  - POLLAKIURIA [None]
  - DIARRHOEA [None]
  - HAEMORRHAGE [None]
  - INTESTINAL ULCER [None]
  - ABNORMAL LOSS OF WEIGHT [None]
